FAERS Safety Report 23630202 (Version 1)
Quarter: 2024Q1

REPORT INFORMATION
  Report Type: Spontaneous
  Country: DE (occurrence: DE)
  Receive Date: 20240314
  Receipt Date: 20240314
  Transmission Date: 20240410
  Serious: Yes (Other)
  Sender: FDA-Public Use
  Company Number: None

PATIENT
  Age: 51 Year
  Sex: Male
  Weight: 75 kg

DRUGS (1)
  1. BACLOFEN [Suspect]
     Active Substance: BACLOFEN
     Indication: Muscle disorder
     Dosage: CURRENTLY 2-0-2 UNTIL EXPECTED 20240627, RATIOPHARM 10 MG TABLETS.
     Route: 048
     Dates: start: 20231114

REACTIONS (3)
  - Orgasm abnormal [Recovering/Resolving]
  - Erectile dysfunction [Recovered/Resolved]
  - Penis disorder [Recovering/Resolving]

NARRATIVE: CASE EVENT DATE: 20240101
